FAERS Safety Report 5007447-3 (Version None)
Quarter: 2006Q2

REPORT INFORMATION
  Report Type: 
  Country: None (occurrence: None)
  Receive Date: 20060519
  Receipt Date: 20060519
  Transmission Date: 20061013
  Serious: Yes (Other)
  Sender: FDA-Public Use
  Company Number: None

PATIENT
  Age: 45 Year
  Sex: Female
  Weight: 85.7298 kg

DRUGS (1)
  1. LEVAQUIN [Suspect]
     Indication: UVULITIS
     Dosage: 500 MG    DAILY    PO
     Route: 048
     Dates: start: 20060410, end: 20060420

REACTIONS (1)
  - TENDON RUPTURE [None]
